FAERS Safety Report 18293327 (Version 1)
Quarter: 2020Q3

REPORT INFORMATION
  Report Type: Spontaneous
  Country: US (occurrence: US)
  Receive Date: 20200921
  Receipt Date: 20200921
  Transmission Date: 20201103
  Serious: No
  Sender: FDA-Public Use
  Company Number: US-HANGZHOU MINSHENG BINJIANG PHARMACEUTICAL CO., LTD.-2091002

PATIENT
  Age: 63 Year
  Sex: Female
  Weight: 43.18 kg

DRUGS (9)
  1. COMPLETE OMEGA [Concomitant]
  2. ALENDRONATE SODIUM. [Suspect]
     Active Substance: ALENDRONATE SODIUM
     Indication: OSTEOPOROSIS
     Route: 048
     Dates: start: 20200731
  3. GABAPENTIN. [Concomitant]
     Active Substance: GABAPENTIN
  4. GEODON [Concomitant]
     Active Substance: ZIPRASIDONE HYDROCHLORIDE\ZIPRASIDONE MESYLATE
  5. TOPIRAMATE. [Concomitant]
     Active Substance: TOPIRAMATE
  6. MAGNESIUM [Concomitant]
     Active Substance: MAGNESIUM
  7. CALCIUM [Concomitant]
     Active Substance: CALCIUM
  8. ATIVAN [Concomitant]
     Active Substance: LORAZEPAM
  9. LEXAPRO [Concomitant]
     Active Substance: ESCITALOPRAM OXALATE

REACTIONS (1)
  - Anal incontinence [Not Recovered/Not Resolved]
